FAERS Safety Report 11363727 (Version 1)
Quarter: 2015Q3

REPORT INFORMATION
  Report Type: Spontaneous
  Country: US (occurrence: None)
  Receive Date: 20150810
  Receipt Date: 20150810
  Transmission Date: 20151125
  Serious: Yes (Other)
  Sender: FDA-Public Use
  Company Number: None

PATIENT
  Age: 74 Year
  Sex: Male
  Weight: 79.38 kg

DRUGS (3)
  1. WARFIN [Concomitant]
     Active Substance: WARFARIN
  2. MYRBETRIQ [Suspect]
     Active Substance: MIRABEGRON
     Dosage: CLOSE TO TWO YEARS 1 DAILY ONCE DAILY TAKEN BY MOUTH
     Route: 048
  3. ZEGERID [Concomitant]
     Active Substance: OMEPRAZOLE\SODIUM BICARBONATE

REACTIONS (1)
  - Anorectal disorder [None]

NARRATIVE: CASE EVENT DATE: 20150720
